FAERS Safety Report 5531188-7 (Version None)
Quarter: 2007Q4

REPORT INFORMATION
  Report Type: 
  Country: None (occurrence: None)
  Receive Date: 20071130
  Receipt Date: 20071121
  Transmission Date: 20080405
  Serious: Yes (Hospitalization)
  Sender: FDA-Public Use
  Company Number: US-GENENTECH-251721

PATIENT
  Sex: Female
  Weight: 24.09 kg

DRUGS (7)
  1. SOMATROPIN [Suspect]
     Indication: HYPOPITUITARISM
     Dosage: 0.45 MG, 7/WEEK
     Route: 058
     Dates: start: 20020704
  2. CORTEF [Concomitant]
     Indication: DRUG USE FOR UNKNOWN INDICATION
     Dosage: 1.8 ML, TID
  3. CLONIDINE [Concomitant]
     Indication: DRUG USE FOR UNKNOWN INDICATION
     Dosage: 100 A?G, QHS
     Route: 048
  4. LEVOXYL [Concomitant]
     Indication: DRUG USE FOR UNKNOWN INDICATION
     Dosage: 75 A?G, QD
  5. PHENOBARB [Concomitant]
     Indication: DRUG USE FOR UNKNOWN INDICATION
     Dosage: 10 ML, BID
  6. DIAZOXIDE [Concomitant]
     Indication: DRUG USE FOR UNKNOWN INDICATION
     Dosage: 1.1 ML, TID
     Route: 048
     Dates: start: 20040329
  7. DDAVP (NEEDS NO REFRIGERATION) [Concomitant]
     Indication: DRUG USE FOR UNKNOWN INDICATION
     Route: 058

REACTIONS (1)
  - URINARY TRACT INFECTION [None]
